FAERS Safety Report 7648018-X (Version None)
Quarter: 2011Q3

REPORT INFORMATION
  Report Type: 
  Country: None (occurrence: None)
  Receive Date: 20110801
  Receipt Date: 20110727
  Transmission Date: 20111222
  Serious: Yes (Other)
  Sender: FDA-Public Use
  Company Number: CHPA2011US09986

PATIENT
  Age: 19 Year
  Sex: Female

DRUGS (4)
  1. ANALGESICS [Concomitant]
     Indication: BACK PAIN
  2. THERAPEUTIC MINERAL ICE [Suspect]
     Indication: BACK PAIN
     Dosage: UNK, ONCE
     Route: 061
     Dates: start: 20110726, end: 20110726
  3. ANALGESICS [Concomitant]
     Indication: MUSCULOSKELETAL PAIN
     Dosage: UNK, UNK
     Route: 048
     Dates: start: 20110701
  4. THERAPEUTIC MINERAL ICE [Suspect]
     Indication: MUSCLE TIGHTNESS

REACTIONS (4)
  - INFECTION [None]
  - OFF LABEL USE [None]
  - BLISTER [None]
  - THERMAL BURN [None]
